FAERS Safety Report 15640506 (Version 1)
Quarter: 2018Q4

REPORT INFORMATION
  Report Type: Spontaneous
  Country: US (occurrence: US)
  Receive Date: 20181114
  Receipt Date: 20181114
  Transmission Date: 20190205
  Serious: No
  Sender: FDA-Public Use
  Company Number: None

PATIENT
  Age: 45 Year
  Sex: Female

DRUGS (1)
  1. SUTENT [Suspect]
     Active Substance: SUNITINIB MALATE
     Route: 048
     Dates: start: 201810

REACTIONS (5)
  - Neuropathy peripheral [None]
  - Vomiting [None]
  - Diarrhoea [None]
  - Stomatitis [None]
  - Nausea [None]

NARRATIVE: CASE EVENT DATE: 20181113
